FAERS Safety Report 5287118-9 (Version None)
Quarter: 2007Q1

REPORT INFORMATION
  Report Type: 
  Country: None (occurrence: None)
  Receive Date: 20070330
  Receipt Date: 20070323
  Transmission Date: 20070707
  Serious: Yes (Death)
  Sender: FDA-Public Use
  Company Number: 0702-148

PATIENT
  Sex: 0

DRUGS (1)
  1. ALBUTEROL SULFATE [Suspect]
     Indication: ASTHMA

REACTIONS (1)
  - ASTHMA [None]
